FAERS Safety Report 4438950-2 (Version None)
Quarter: 2004Q3

REPORT INFORMATION
  Report Type: 
  Country: None (occurrence: None)
  Receive Date: 20040830
  Receipt Date: 20040818
  Transmission Date: 20050211
  Serious: Yes (Hospitalization)
  Sender: FDA-Public Use
  Company Number: 2004PK00937

PATIENT
  Age: 61 Year
  Sex: Male

DRUGS (17)
  1. SEROQUEL [Suspect]
     Dosage: 800 MG DAILY PO
     Route: 048
     Dates: start: 20040115, end: 20040219
  2. ORFIRIL ^DESYTIN^ [Suspect]
     Dosage: 600 MG DAILY PO
     Route: 048
     Dates: start: 20040115, end: 20040217
  3. ORFIRIL ^DESYTIN^ [Suspect]
     Dosage: 1050 MG DAILY PO
     Route: 048
     Dates: start: 20040218, end: 20040218
  4. ORFIRIL ^DESYTIN^ [Suspect]
     Dosage: 1800 MG DAILY PO
     Route: 048
     Dates: start: 20040219, end: 20040219
  5. ORFIRIL ^DESYTIN^ [Suspect]
     Dosage: 2400 MG DAILY PO
     Route: 048
     Dates: start: 20040220, end: 20040225
  6. ORFIRIL ^DESYTIN^ [Suspect]
     Dosage: 2100 MG DAILY PO
     Route: 048
     Dates: start: 20040226, end: 20040301
  7. ORFIRIL ^DESYTIN^ [Suspect]
     Dosage: 1800 MG DAILY PO
     Route: 048
     Dates: start: 20040302, end: 20040315
  8. ORFIRIL ^DESYTIN^ [Suspect]
     Dosage: 1300 MG DAILY PO
     Route: 048
     Dates: start: 20040316, end: 20040316
  9. ORFIRIL ^DESYTIN^ [Suspect]
     Dosage: 1200 MG DAILY PO
     Route: 048
     Dates: start: 20040317, end: 20040329
  10. ORFIRIL ^DESYTIN^ [Suspect]
     Dosage: 1050 MG DAILY PO
     Route: 048
     Dates: start: 20040330
  11. QUILONORM  RETARD [Suspect]
     Dosage: 450 MG DAILY
     Dates: start: 20040223, end: 20040225
  12. QUILONORM  RETARD [Suspect]
     Dosage: 675 MG DAILY
     Dates: start: 20040226, end: 20040406
  13. QUILONORM  RETARD [Suspect]
     Dosage: 450 MG DAILY PO
     Route: 048
     Dates: start: 20040407, end: 20040528
  14. COAPROVEL [Concomitant]
  15. TEMESTA [Concomitant]
  16. ATORVASTATIN CALCIUM [Concomitant]
  17. ASPIRIN [Concomitant]

REACTIONS (9)
  - ACTIVITIES OF DAILY LIVING IMPAIRED [None]
  - CHILLS [None]
  - LACRIMAL DISORDER [None]
  - MUSCULOSKELETAL STIFFNESS [None]
  - OEDEMA [None]
  - PARKINSONISM [None]
  - PSYCHIATRIC SYMPTOM [None]
  - RESTLESS LEGS SYNDROME [None]
  - TREMOR [None]
